FAERS Safety Report 17594375 (Version 1)
Quarter: 2020Q1

REPORT INFORMATION
  Report Type: Report from Study
  Country: US (occurrence: US)
  Receive Date: 20200327
  Receipt Date: 20200327
  Transmission Date: 20200409
  Serious: Yes (Other)
  Sender: FDA-Public Use
  Company Number: US-TEVA-2020-US-1212753

PATIENT
  Sex: Female

DRUGS (20)
  1. ASPIRIN. [Concomitant]
     Active Substance: ASPIRIN
  2. GABAPENTIN. [Concomitant]
     Active Substance: GABAPENTIN
  3. LAMOTRIGINE. [Concomitant]
     Active Substance: LAMOTRIGINE
  4. AMANTADINE. [Concomitant]
     Active Substance: AMANTADINE HYDROCHLORIDE
  5. NEURONTIN [Concomitant]
     Active Substance: GABAPENTIN
  6. AMLODIPINE [Concomitant]
     Active Substance: AMLODIPINE BESYLATE
  7. LAMICTAL [Concomitant]
     Active Substance: LAMOTRIGINE
  8. LEVOTHYROXIN [Concomitant]
     Active Substance: LEVOTHYROXINE
  9. COPAXONE [Suspect]
     Active Substance: GLATIRAMER ACETATE
     Indication: MULTIPLE SCLEROSIS
     Dosage: 20 MILLIGRAM DAILY; SYRINGE
     Route: 058
     Dates: start: 20150304
  10. ATORVASTATIN [Concomitant]
     Active Substance: ATORVASTATIN
  11. ALENDRONATE [Concomitant]
     Active Substance: ALENDRONATE SODIUM
  12. DULOXETINE. [Concomitant]
     Active Substance: DULOXETINE
  13. KLR-CON [Concomitant]
  14. POT CHLORIDE [Concomitant]
     Active Substance: POTASSIUM CHLORIDE
  15. FOLIC ACID. [Concomitant]
     Active Substance: FOLIC ACID
  16. LIPITOR [Concomitant]
     Active Substance: ATORVASTATIN CALCIUM
  17. VITAMIN D [Concomitant]
     Active Substance: VITAMIN D NOS
  18. AMBIEN [Concomitant]
     Active Substance: ZOLPIDEM TARTRATE
  19. CRANBERRY. [Concomitant]
     Active Substance: CRANBERRY
  20. ZOLPIDEM [Concomitant]
     Active Substance: ZOLPIDEM TARTRATE

REACTIONS (2)
  - Cerebrovascular accident [Not Recovered/Not Resolved]
  - Hemiplegia [Not Recovered/Not Resolved]
